FAERS Safety Report 17214529 (Version 1)
Quarter: 2019Q4

REPORT INFORMATION
  Report Type: Spontaneous
  Country: IL (occurrence: IL)
  Receive Date: 20191230
  Receipt Date: 20191230
  Transmission Date: 20200122
  Serious: Yes (Other)
  Sender: FDA-Public Use
  Company Number: IL-JNJFOC-20191237046

PATIENT
  Age: 40 Year
  Sex: Male

DRUGS (2)
  1. XEPLION [Suspect]
     Active Substance: PALIPERIDONE PALMITATE
     Indication: PRODUCT USED FOR UNKNOWN INDICATION
     Route: 030
     Dates: start: 20160101
  2. ASSIVAL [Concomitant]

REACTIONS (12)
  - Dysgeusia [Unknown]
  - Blood test abnormal [Unknown]
  - Obesity [Unknown]
  - Suicidal ideation [Unknown]
  - Thinking abnormal [Unknown]
  - Psychiatric symptom [Unknown]
  - Nightmare [Unknown]
  - Cold sweat [Unknown]
  - Sleep disorder [Unknown]
  - Depression [Unknown]
  - Pruritus [Unknown]
  - Fatigue [Unknown]
